FAERS Safety Report 4821428-1 (Version None)
Quarter: 2005Q4

REPORT INFORMATION
  Report Type: 
  Country: None (occurrence: None)
  Receive Date: 20051103
  Receipt Date: 20051018
  Transmission Date: 20060501
  Serious: Yes (Disabling)
  Sender: FDA-Public Use
  Company Number: 200408192

PATIENT
  Age: 56 Year
  Sex: Female

DRUGS (9)
  1. BOTOX [Suspect]
     Indication: BLEPHAROSPASM
     Dates: start: 19950101, end: 20010101
  2. BOTOX [Suspect]
     Indication: FACIAL SPASM
     Dates: start: 19950101, end: 20010101
  3. BOTOX [Suspect]
     Indication: BLEPHAROSPASM
     Dosage: 35 UNITS ONCE IM
     Route: 030
  4. BOTOX [Suspect]
     Indication: FACIAL SPASM
     Dosage: 35 UNITS ONCE IM
     Route: 030
  5. BOTOX [Suspect]
     Indication: BLEPHAROSPASM
     Dosage: 37.5 UNITS ONCE IM
     Route: 030
  6. CELEBREX [Concomitant]
  7. PREVACID [Concomitant]
  8. ACIPHEX [Concomitant]
  9. VALTREX [Concomitant]

REACTIONS (30)
  - ANXIETY [None]
  - ARTHRALGIA [None]
  - BALANCE DISORDER [None]
  - BOTULISM [None]
  - BUTTOCK PAIN [None]
  - CHOKING SENSATION [None]
  - DRUG INEFFECTIVE [None]
  - EXOSTOSIS [None]
  - EYE INFLAMMATION [None]
  - EYE IRRITATION [None]
  - FACIAL PALSY [None]
  - FALL [None]
  - FEELING ABNORMAL [None]
  - HEADACHE [None]
  - HERPES ZOSTER [None]
  - INTERVERTEBRAL DISC PROTRUSION [None]
  - LIPOSUCTION [None]
  - MIGRAINE [None]
  - MUSCULOSKELETAL STIFFNESS [None]
  - NECK PAIN [None]
  - NEUROPATHY PERIPHERAL [None]
  - PARALYSIS [None]
  - PLASTIC SURGERY [None]
  - PROCEDURAL PAIN [None]
  - ROAD TRAFFIC ACCIDENT [None]
  - SEBACEOUS HYPERPLASIA [None]
  - SHOULDER PAIN [None]
  - SPINAL OSTEOARTHRITIS [None]
  - THERAPY NON-RESPONDER [None]
  - TOOTH DISORDER [None]
